FAERS Safety Report 14309209 (Version 1)
Quarter: 2017Q4

REPORT INFORMATION
  Report Type: Spontaneous
  Country: US (occurrence: US)
  Receive Date: 20171219
  Receipt Date: 20171219
  Transmission Date: 20180321
  Serious: Yes (Life-Threatening)
  Sender: FDA-Public Use
  Company Number: None

PATIENT
  Age: 83 Year
  Sex: Male

DRUGS (2)
  1. RIVAROXABAN [Suspect]
     Active Substance: RIVAROXABAN
     Indication: MITRAL VALVE REPLACEMENT
     Route: 048
     Dates: start: 20160524, end: 20170330
  2. RIVAROXABAN [Suspect]
     Active Substance: RIVAROXABAN
     Indication: ATRIAL FIBRILLATION
     Route: 048
     Dates: start: 20160524, end: 20170330

REACTIONS (3)
  - Asthenia [None]
  - Chronic obstructive pulmonary disease [None]
  - Abdominal wall haematoma [None]

NARRATIVE: CASE EVENT DATE: 20170331
